FAERS Safety Report 8534869-6 (Version None)
Quarter: 2012Q3

REPORT INFORMATION
  Report Type: 
  Country: None (occurrence: None)
  Receive Date: 20120724
  Receipt Date: 20120716
  Transmission Date: 20120928
  Serious: Yes (Other)
  Sender: FDA-Public Use
  Company Number: CHPA2012GB014606

PATIENT
  Sex: Male

DRUGS (14)
  1. NEXIUM [Concomitant]
     Dosage: 40 MG, UNK
  2. AMLODIPINE BESYLATE [Concomitant]
     Dosage: 5 MG, UNK
  3. MIRTAZAPINE [Concomitant]
     Dosage: 30 MG, UNK
  4. LIORESAL [Concomitant]
     Dosage: 5 MG, MONTHLY
  5. LOSARTAN POTASSIUM [Concomitant]
     Dosage: 50 MG, UNK
  6. ZOLPIDEM TATRATE [Concomitant]
     Dosage: 5 MG, UNK
  7. CETIRIZINE HCL [Concomitant]
     Dosage: 10 MG, UNK
  8. PROSCAR [Concomitant]
     Dosage: 5 MG, UNK
  9. SCOPOLAMINE [Suspect]
     Indication: MUSCLE SPASMS
     Dosage: 1 DF, Q72H
     Route: 062
     Dates: start: 20111109
  10. GALFER [Concomitant]
     Dosage: UNK, UNK
  11. SENOKOT                                 /UNK/ [Concomitant]
     Dosage: UNK, UNK
  12. CITALOPRAM HYDROBROMIDE [Concomitant]
     Dosage: 10 MG, UNK
  13. SOLPADEINE                              /IRE/ [Concomitant]
     Dosage: UNK, UNK
  14. LACTULOSE [Concomitant]
     Dosage: UNK, UNK

REACTIONS (3)
  - THERAPEUTIC RESPONSE UNEXPECTED [None]
  - APPLICATION SITE HYPERSENSITIVITY [None]
  - OFF LABEL USE [None]
